FAERS Safety Report 21524199 (Version 2)
Quarter: 2024Q4

REPORT INFORMATION
  Report Type: Spontaneous
  Country: US (occurrence: US)
  Receive Date: 20221029
  Receipt Date: 20241011
  Transmission Date: 20250114
  Serious: No
  Sender: NOVARTIS
  Company Number: US-NOVARTISTESTPH-NVSC2022US244096

PATIENT
  Sex: Male
  Weight: 55.1 kg

DRUGS (2)
  1. LUTATHERA [Suspect]
     Active Substance: LUTETIUM OXODOTREOTIDE LU-177
     Indication: Neuroendocrine tumour
     Dosage: 200 MCI (LIQUID, EVERY 8 WEEKS)
     Route: 042
     Dates: start: 20220629, end: 20220907
  2. LUTATHERA [Suspect]
     Active Substance: LUTETIUM OXODOTREOTIDE LU-177
     Dosage: 200 MCI (LIQUID, EVERY 8 WEEKS)
     Route: 042
     Dates: start: 20220629, end: 20220907

REACTIONS (1)
  - Ill-defined disorder [Unknown]
